FAERS Safety Report 21243025 (Version 1)
Quarter: 2022Q3

REPORT INFORMATION
  Report Type: Spontaneous
  Country: DE (occurrence: None)
  Receive Date: 20220823
  Receipt Date: 20220823
  Transmission Date: 20221027
  Serious: Yes (Other)
  Sender: FDA-Public Use
  Company Number: 2022A287788

PATIENT
  Age: 14 Year
  Sex: Female

DRUGS (1)
  1. SEROQUEL [Suspect]
     Active Substance: QUETIAPINE FUMARATE
     Dosage: 1000 MG QUETIAPINE (400 MG IN THE MORNING, 300 MG MIDDAY, 300 MG IN THE EVENING)
     Route: 048
     Dates: start: 202204

REACTIONS (3)
  - Overdose [Unknown]
  - Drug level decreased [Unknown]
  - Off label use [Unknown]
